FAERS Safety Report 9358798 (Version 1)
Quarter: 2013Q2

REPORT INFORMATION
  Report Type: Spontaneous
  Country: CA (occurrence: CA)
  Receive Date: 20130620
  Receipt Date: 20130620
  Transmission Date: 20140414
  Serious: Yes (Other)
  Sender: FDA-Public Use
  Company Number: CA-ALEXION-A201301280

PATIENT
  Age: 73 Year
  Sex: Male

DRUGS (7)
  1. SOLIRIS 300MG [Suspect]
     Indication: PAROXYSMAL NOCTURNAL HAEMOGLOBINURIA
     Dosage: 600 MG, QW
     Route: 042
     Dates: start: 20130327, end: 20130417
  2. SOLIRIS 300MG [Suspect]
     Dosage: 900 MG, Q2W
     Route: 042
     Dates: start: 20130424
  3. COUMADIN [Concomitant]
     Indication: BUDD-CHIARI SYNDROME
     Dosage: 4 MG, QD
     Route: 048
  4. GABAPENTIN [Concomitant]
     Indication: ARTHRITIS
     Dosage: 100 MG, BID
     Route: 048
  5. RANITIDINE [Concomitant]
     Indication: PRODUCT USED FOR UNKNOWN INDICATION
     Dosage: 150 MG, BID
     Route: 048
  6. GATIFLOXACIN [Concomitant]
     Indication: PRODUCT USED FOR UNKNOWN INDICATION
     Dosage: 1 DF, QID, 0.3% OS
     Route: 047
     Dates: start: 20130506
  7. PREDNISOLONE [Concomitant]
     Indication: PRODUCT USED FOR UNKNOWN INDICATION
     Dosage: 1 DF, QID, 1% OS
     Route: 047
     Dates: start: 20130506

REACTIONS (1)
  - Transfusion [Recovered/Resolved]
